FAERS Safety Report 18625609 (Version 1)
Quarter: 2020Q4

REPORT INFORMATION
  Report Type: Spontaneous
  Country: US (occurrence: US)
  Receive Date: 20201216
  Receipt Date: 20201216
  Transmission Date: 20210114
  Serious: No
  Sender: FDA-Public Use
  Company Number: US-GE HEALTHCARE LIFE SCIENCES-2020CSU005501

PATIENT
  Age: 36 Year
  Sex: Female

DRUGS (4)
  1. OMNIPAQUE [Suspect]
     Active Substance: IOHEXOL
     Indication: NECK MASS
  2. OMNIPAQUE [Suspect]
     Active Substance: IOHEXOL
     Indication: COMPUTERISED TOMOGRAM NECK
     Dosage: 100 ML, SINGLE
     Route: 042
     Dates: start: 20201023, end: 20201023
  3. PREDNISOLONE. [Concomitant]
     Active Substance: PREDNISOLONE
     Indication: PREMEDICATION
     Dosage: (13HR, 7HR AND 1HR PRIOR TO EXAM)
     Route: 048
     Dates: start: 20201022, end: 20201023
  4. BENADRYL [Concomitant]
     Active Substance: DIPHENHYDRAMINE HYDROCHLORIDE
     Indication: PREMEDICATION
     Dosage: (13HR, 7HR AND 1HR PRIOR TO EXAM)
     Route: 048
     Dates: start: 20201022, end: 20201023

REACTIONS (3)
  - Chills [Recovered/Resolved]
  - Choking sensation [Recovered/Resolved]
  - Pruritus [Recovered/Resolved]

NARRATIVE: CASE EVENT DATE: 20201023
